APPROVED DRUG PRODUCT: TRIAMTERENE AND HYDROCHLOROTHIAZIDE
Active Ingredient: HYDROCHLOROTHIAZIDE; TRIAMTERENE
Strength: 50MG;75MG
Dosage Form/Route: TABLET;ORAL
Application: A216211 | Product #002 | TE Code: AB
Applicant: RUBICON RESEARCH LTD
Approved: Feb 23, 2022 | RLD: No | RS: No | Type: RX